FAERS Safety Report 19366484 (Version 1)
Quarter: 2021Q2

REPORT INFORMATION
  Report Type: Report from Study
  Country: GB (occurrence: GB)
  Receive Date: 20210602
  Receipt Date: 20210602
  Transmission Date: 20210717
  Serious: Yes (Other)
  Sender: FDA-Public Use
  Company Number: GB-MYLANLABS-2021M1030714

PATIENT
  Sex: Female

DRUGS (1)
  1. BRABIO 40 MG/ML SOLUTION FOR INJECTION, PRE?FILLED?SYRINGE [Suspect]
     Active Substance: GLATIRAMER ACETATE
     Indication: MULTIPLE SCLEROSIS
     Dosage: 40 MILLIGRAM, 3XW
     Route: 058
     Dates: start: 20191025

REACTIONS (3)
  - Progressive multiple sclerosis [Unknown]
  - Chest pain [Unknown]
  - Hypersensitivity [Unknown]
